FAERS Safety Report 6857370-4 (Version None)
Quarter: 2010Q3

REPORT INFORMATION
  Report Type: 
  Country: None (occurrence: None)
  Receive Date: 20100719
  Receipt Date: 20100707
  Transmission Date: 20110219
  Serious: Yes (Other)
  Sender: FDA-Public Use
  Company Number: BR-PFIZER INC-2010076528

PATIENT
  Age: 31 Year
  Sex: Female
  Weight: 51 kg

DRUGS (4)
  1. CHAMPIX [Suspect]
     Indication: TOBACCO USER
     Dosage: UNK
     Route: 048
     Dates: start: 20100611
  2. CHAMPIX [Suspect]
     Dosage: 0.5 MG, 2X/DAY, EVERY 12 HOURS
  3. RIVOTRIL [Concomitant]
     Indication: SLEEP DISORDER
     Dosage: UNK
  4. RIVOTRIL [Concomitant]
     Indication: ANXIETY

REACTIONS (2)
  - ANXIETY [None]
  - NERVOUSNESS [None]
